FAERS Safety Report 7732859-4 (Version None)
Quarter: 2011Q3

REPORT INFORMATION
  Report Type: 
  Country: None (occurrence: None)
  Receive Date: 20110907
  Receipt Date: 20110831
  Transmission Date: 20111222
  Serious: Yes (Death, Hospitalization)
  Sender: FDA-Public Use
  Company Number: PHHO2011UG14090

PATIENT
  Age: 36 Year
  Sex: Female

DRUGS (8)
  1. SEPTRA [Concomitant]
     Dosage: UNK
     Dates: start: 20070914, end: 20110729
  2. AMIKACIN [Concomitant]
     Dosage: UNK
     Dates: start: 20110705, end: 20110715
  3. PYRAZINAMIDE [Suspect]
     Indication: TUBERCULOSIS
     Dosage: UNK
     Dates: start: 20110617, end: 20110729
  4. ISONIAZID [Suspect]
     Indication: TUBERCULOSIS
     Dosage: UNK
     Dates: start: 20110617, end: 20110729
  5. ETHAMBUTOL [Concomitant]
     Indication: TUBERCULOSIS
     Dosage: UNK
     Dates: start: 20110617, end: 20110729
  6. KALETRA [Concomitant]
     Dosage: UNK
     Dates: start: 20110317, end: 20110729
  7. RIFABUTIN [Suspect]
     Indication: TUBERCULOSIS
     Dosage: UNK
     Dates: start: 20110617, end: 20110729
  8. LOPINAVIR [Concomitant]
     Dosage: UNK
     Dates: start: 20110317, end: 20110729

REACTIONS (7)
  - SEPSIS [None]
  - BLOOD BICARBONATE DECREASED [None]
  - TONIC CLONIC MOVEMENTS [None]
  - GASTRITIS [None]
  - HIV INFECTION [None]
  - HEPATITIS [None]
  - HYPOKALAEMIA [None]
